FAERS Safety Report 10038440 (Version 5)
Quarter: 2014Q3

REPORT INFORMATION
  Report Type: Spontaneous
  Country: US (occurrence: US)
  Receive Date: 20140326
  Receipt Date: 20140703
  Transmission Date: 20150326
  Serious: Yes (Other)
  Sender: FDA-Public Use
  Company Number: US-GLAXOSMITHKLINE-A1066581A

PATIENT
  Sex: Female

DRUGS (3)
  1. BENLYSTA [Suspect]
     Active Substance: BELIMUMAB
     Indication: PRODUCT USED FOR UNKNOWN INDICATION
     Route: 065
     Dates: start: 201211, end: 20140303
  2. TRAMADOL [Suspect]
     Active Substance: TRAMADOL
     Indication: PRODUCT USED FOR UNKNOWN INDICATION
     Route: 065
  3. PAIN RELIEVER (ACETAMINOPHEN) [Concomitant]
     Active Substance: ACETAMINOPHEN

REACTIONS (24)
  - Headache [Not Recovered/Not Resolved]
  - Lymph node pain [Unknown]
  - Dyspnoea [Unknown]
  - Breast pain [Unknown]
  - Axillary pain [Unknown]
  - Rash [Unknown]
  - Temperature intolerance [Unknown]
  - Hyperaesthesia [Unknown]
  - Chest pain [Unknown]
  - Hyperhidrosis [Unknown]
  - Chills [Unknown]
  - Systemic lupus erythematosus [Unknown]
  - Malaise [Unknown]
  - Lymphadenopathy [Unknown]
  - Migraine [Unknown]
  - Vasculitis [Unknown]
  - Pain [Unknown]
  - Erythema [Unknown]
  - Musculoskeletal chest pain [Unknown]
  - Feeling hot [Unknown]
  - Pruritus generalised [Unknown]
  - Fatigue [Unknown]
  - Drug ineffective [Unknown]
  - White blood cell count decreased [Not Recovered/Not Resolved]

NARRATIVE: CASE EVENT DATE: 201402
